FAERS Safety Report 22392446 (Version 4)
Quarter: 2024Q1

REPORT INFORMATION
  Report Type: Spontaneous
  Country: JP (occurrence: JP)
  Receive Date: 20230601
  Receipt Date: 20240327
  Transmission Date: 20240409
  Serious: Yes (Hospitalization, Other)
  Sender: FDA-Public Use
  Company Number: JP-AMGEN-JPNSP2022218772

PATIENT
  Sex: Male

DRUGS (6)
  1. REPATHA [Suspect]
     Active Substance: EVOLOCUMAB
     Indication: Low density lipoprotein increased
     Dosage: 140 MILLIGRAM, Q2WK
     Route: 058
  2. REPATHA [Suspect]
     Active Substance: EVOLOCUMAB
     Dosage: 140 MILLIGRAM, Q3WK
     Route: 058
  3. REPATHA [Suspect]
     Active Substance: EVOLOCUMAB
     Dosage: 140 UNK
     Route: 058
  4. ASPIRIN [Concomitant]
     Active Substance: ASPIRIN
  5. LIPITOR [Concomitant]
     Active Substance: ATORVASTATIN CALCIUM
  6. ZETIA [Concomitant]
     Active Substance: EZETIMIBE

REACTIONS (13)
  - Cerebral haemorrhage [Unknown]
  - Myocardial infarction [Unknown]
  - Angina pectoris [Unknown]
  - Low density lipoprotein decreased [Unknown]
  - Epistaxis [Unknown]
  - Off label use [Unknown]
  - Dizziness [Unknown]
  - Low density lipoprotein increased [Unknown]
  - Administration site pain [Unknown]
  - Angiopathy [Unknown]
  - Drug eruption [Unknown]
  - Hypersensitivity [Unknown]
  - Injection site pain [Unknown]
